FAERS Safety Report 4726751-7 (Version None)
Quarter: 2005Q3

REPORT INFORMATION
  Report Type: 
  Country: None (occurrence: None)
  Receive Date: 20050725
  Receipt Date: 20050420
  Transmission Date: 20060218
  Serious: No
  Sender: FDA-Public Use
  Company Number: USA050496106

PATIENT
  Age: 7 Year
  Sex: Female

DRUGS (1)
  1. STRATTERA [Suspect]
     Indication: DISTURBANCE IN ATTENTION
     Dosage: 18 MG/ONCE DAY
     Dates: start: 20050303

REACTIONS (4)
  - DYSPHAGIA [None]
  - MOOD SWINGS [None]
  - STOMACH DISCOMFORT [None]
  - THERAPEUTIC RESPONSE DECREASED [None]
